FAERS Safety Report 7964954-9 (Version None)
Quarter: 2011Q4

REPORT INFORMATION
  Report Type: 
  Country: None (occurrence: None)
  Receive Date: 20111208
  Receipt Date: 20111202
  Transmission Date: 20120403
  Serious: Yes (Hospitalization)
  Sender: FDA-Public Use
  Company Number: CA-SANOFI-AVENTIS-2011SA075140

PATIENT
  Age: 63 Year
  Sex: Male

DRUGS (8)
  1. NOVORAPID [Concomitant]
     Indication: TYPE 2 DIABETES MELLITUS
  2. LASIX [Suspect]
  3. METOLAZONE [Suspect]
  4. METFORMIN HCL [Concomitant]
     Indication: TYPE 2 DIABETES MELLITUS
     Dates: end: 20110201
  5. PLACEBO [Concomitant]
     Indication: TYPE 2 DIABETES MELLITUS
     Dates: start: 20101103
  6. BLINDED THERAPY [Concomitant]
     Indication: TYPE 2 DIABETES MELLITUS
     Dates: start: 20101103
  7. METFORMIN HCL [Concomitant]
     Dates: start: 20110201
  8. NPH INSULIN [Concomitant]
     Indication: TYPE 2 DIABETES MELLITUS

REACTIONS (5)
  - ACUTE PRERENAL FAILURE [None]
  - DYSPNOEA [None]
  - BACK PAIN [None]
  - RENAL FAILURE [None]
  - CARDIAC FAILURE CONGESTIVE [None]
